FAERS Safety Report 22352006 (Version 1)
Quarter: 2023Q2

REPORT INFORMATION
  Report Type: Spontaneous
  Country: HU (occurrence: HU)
  Receive Date: 20230522
  Receipt Date: 20230522
  Transmission Date: 20230722
  Serious: Yes (Hospitalization, Other)
  Sender: FDA-Public Use
  Company Number: HU-TEVA-2021-HU-1870452

PATIENT
  Age: 74 Year
  Sex: Male

DRUGS (4)
  1. PEMETREXED [Suspect]
     Active Substance: PEMETREXED
     Indication: Lung neoplasm malignant
     Dosage: 1000 MG
     Route: 065
  2. PEMETREXED [Suspect]
     Active Substance: PEMETREXED
     Indication: Lung adenocarcinoma
  3. CARBOPLATIN [Suspect]
     Active Substance: CARBOPLATIN
     Indication: Lung neoplasm malignant
     Dosage: UNK
     Route: 065
  4. CARBOPLATIN [Suspect]
     Active Substance: CARBOPLATIN
     Indication: Lung adenocarcinoma

REACTIONS (17)
  - Papule [Recovered/Resolved]
  - Mucosal hyperaemia [Recovered/Resolved]
  - Oral papule [Recovered/Resolved]
  - Skin burning sensation [Recovered/Resolved]
  - Product administration error [Unknown]
  - Skin plaque [Recovered/Resolved]
  - Oral mucosa erosion [Recovered/Resolved]
  - Hyperaemia [Recovered/Resolved]
  - Skin erosion [Recovered/Resolved]
  - Pancytopenia [Recovered/Resolved]
  - Drug hypersensitivity [Recovered/Resolved]
  - Toxicity to various agents [Recovered/Resolved]
  - Skin exfoliation [Recovered/Resolved]
  - Rash [Recovered/Resolved]
  - Pneumonia [Recovered/Resolved]
  - Sepsis [Recovered/Resolved]
  - Leukopenia [Recovered/Resolved]
